FAERS Safety Report 7807129-6 (Version None)
Quarter: 2011Q4

REPORT INFORMATION
  Report Type: 
  Country: None (occurrence: None)
  Receive Date: 20111011
  Receipt Date: 20110928
  Transmission Date: 20120403
  Serious: Yes (Hospitalization, Other)
  Sender: FDA-Public Use
  Company Number: US-ELI_LILLY_AND_COMPANY-US201108003832

PATIENT
  Sex: Female
  Weight: 57 kg

DRUGS (8)
  1. VITAMIN B-12 [Concomitant]
  2. MAVIK [Concomitant]
  3. ARICEPT [Concomitant]
  4. DYAZIDE [Concomitant]
  5. ZANTAC [Concomitant]
  6. FORTEO [Suspect]
     Indication: OSTEOPOROSIS
     Dosage: 20 UG, QD
     Route: 058
  7. ASPIRIN [Concomitant]
  8. OSCAL                              /00108001/ [Concomitant]

REACTIONS (2)
  - FALL [None]
  - HIP FRACTURE [None]
